FAERS Safety Report 7219119-5 (Version None)
Quarter: 2011Q1

REPORT INFORMATION
  Report Type: 
  Country: None (occurrence: None)
  Receive Date: 20110111
  Receipt Date: 20101216
  Transmission Date: 20110831
  Serious: Yes (Hospitalization)
  Sender: FDA-Public Use
  Company Number: US-BAYER-201013969NA

PATIENT
  Sex: Female
  Weight: 52 kg

DRUGS (22)
  1. SINGULAIR [Concomitant]
     Dates: start: 20020101
  2. IMITREX [Concomitant]
     Dates: start: 20051201
  3. LORTAB [Concomitant]
     Indication: MUSCULOSKELETAL DISORDER
     Dates: start: 20060101, end: 20100101
  4. VICODIN [Concomitant]
     Dates: start: 20060101, end: 20100615
  5. HYDROCODONE BITARTRATE AND ACETAMINOPHEN [Concomitant]
     Dosage: UNK
     Dates: start: 20071106
  6. CLARITIN [Concomitant]
     Indication: MULTIPLE ALLERGIES
     Dates: start: 20000101, end: 20100615
  7. VALIUM [Concomitant]
     Indication: ANXIETY
     Dosage: 10 MG, UNK
     Dates: start: 20070101, end: 20100615
  8. NSAID'S [Concomitant]
     Dates: start: 20000101
  9. HYDROCODONE BITARTRATE AND ACETAMINOPHEN [Concomitant]
     Dosage: UNK
     Route: 048
     Dates: start: 20071009
  10. CEPHALEXIN [Concomitant]
     Dosage: 500 MG, UNK
     Route: 048
     Dates: start: 20071020
  11. METRONIDAZOLE [Concomitant]
     Dosage: 250 MG, UNK
     Route: 048
     Dates: start: 20071129
  12. YASMIN [Suspect]
     Indication: MUSCULOSKELETAL DISORDER
     Dosage: UNK
     Route: 048
     Dates: start: 20050101, end: 20070101
  13. LIPITOR [Concomitant]
     Indication: BLOOD CHOLESTEROL INCREASED
     Dosage: UNK
     Dates: start: 20080101
  14. HYDROCODONE BITARTRATE AND ACETAMINOPHEN [Concomitant]
     Dosage: UNK
     Dates: start: 20071023
  15. HYDROCODONE BITARTRATE AND ACETAMINOPHEN [Concomitant]
     Dosage: UNK
     Dates: start: 20071119
  16. YAZ [Suspect]
     Indication: PRODUCT USED FOR UNKNOWN INDICATION
     Route: 048
  17. HYDROCODONE BITARTRATE AND ACETAMINOPHEN [Concomitant]
     Dosage: UNK
     Dates: start: 20071204
  18. LEVAQUIN [Concomitant]
     Dosage: 500 MG, UNK
     Route: 048
     Dates: start: 20071128
  19. CIPROFLAXACIN [Concomitant]
     Dosage: 500 MG, UNK
     Route: 048
     Dates: start: 20071129
  20. ALBUTEROL INHALER [Concomitant]
     Dates: start: 20020101
  21. UNCODEABLE ^UNCLASSIFIABLE^ [Concomitant]
     Dates: start: 20051201
  22. NSAID'S [Concomitant]
     Dosage: UNK
     Dates: start: 20020101

REACTIONS (1)
  - PULMONARY EMBOLISM [None]
